FAERS Safety Report 6616587-4 (Version None)
Quarter: 2010Q1

REPORT INFORMATION
  Report Type: 
  Country: None (occurrence: None)
  Receive Date: 20100305
  Receipt Date: 20100226
  Transmission Date: 20100710
  Serious: Yes (Hospitalization)
  Sender: FDA-Public Use
  Company Number: PHHO2010CA01717

PATIENT
  Sex: Male
  Weight: 69.7 kg

DRUGS (1)
  1. AFINITOR [Suspect]
     Indication: METASTATIC RENAL CELL CARCINOMA
     Dosage: 10 MG, QD
     Route: 048
     Dates: start: 20091231, end: 20100123

REACTIONS (9)
  - DRUG INEFFECTIVE [None]
  - HYPOPHAGIA [None]
  - LYMPHADENOPATHY [None]
  - MALAISE [None]
  - MALIGNANT NEOPLASM PROGRESSION [None]
  - NAUSEA [None]
  - RENAL FAILURE [None]
  - URETERIC OBSTRUCTION [None]
  - VOMITING [None]
